FAERS Safety Report 9257650 (Version 1)
Quarter: 2013Q1

REPORT INFORMATION
  Report Type: Spontaneous
  Country: US (occurrence: None)
  Receive Date: 20121212
  Receipt Date: 20121212
  Transmission Date: 20140127
  Serious: No
  Sender: FDA-Public Use
  Company Number: 1209USA005343

PATIENT
  Age: 59 Year
  Sex: Female

DRUGS (3)
  1. PEG-INTRON (PEGINTERFERON ALFA-2B) POWDER FOR INJECTION, 150MICROGRAM [Suspect]
     Indication: HEPATITIS C
     Dates: start: 20120814
  2. REBETOL (RIBAVIRIN) CAPSULE [Suspect]
     Indication: HEPATITIS C
     Dosage: 6 PILLS DAILY?
     Dates: start: 20120814
  3. VICTRELIS (BOCEPREVIR) CAPSULE [Suspect]
     Indication: HEPATITIS C
     Route: 048
     Dates: start: 20120914

REACTIONS (8)
  - Crying [None]
  - Red blood cell count decreased [None]
  - Fatigue [None]
  - Dysgeusia [None]
  - Decreased appetite [None]
  - Blood glucose decreased [None]
  - Vomiting [None]
  - Dyspnoea [None]
